FAERS Safety Report 10416232 (Version 2)
Quarter: 2015Q3

REPORT INFORMATION
  Report Type: Spontaneous
  Country: US (occurrence: US)
  Receive Date: 20140828
  Receipt Date: 20150722
  Transmission Date: 20151125
  Serious: No
  Sender: FDA-Public Use
  Company Number: US-GILEAD-2013-0080803

PATIENT
  Sex: Male

DRUGS (1)
  1. ATRIPLA [Suspect]
     Active Substance: EFAVIRENZ\EMTRICITABINE\TENOFOVIR DISOPROXIL FUMARATE
     Indication: PRODUCT USED FOR UNKNOWN INDICATION
     Dosage: UNK
     Dates: start: 201302

REACTIONS (8)
  - Migraine [Unknown]
  - Dehydration [Unknown]
  - Abnormal dreams [Unknown]
  - Vomiting [Unknown]
  - Hypophagia [Unknown]
  - Insomnia [Unknown]
  - Mood swings [Unknown]
  - Diarrhoea [Unknown]

NARRATIVE: CASE EVENT DATE: 201307
